FAERS Safety Report 4372698-8 (Version None)
Quarter: 2004Q2

REPORT INFORMATION
  Report Type: 
  Country: None (occurrence: None)
  Receive Date: 20040526
  Receipt Date: 20040517
  Transmission Date: 20050107
  Serious: Yes (Hospitalization)
  Sender: FDA-Public Use
  Company Number: 2004-BP-03810RO

PATIENT
  Sex: Female

DRUGS (1)
  1. PREDNISONE TAB [Suspect]
     Indication: CROHN'S DISEASE
     Dosage: HIGH DOSE OF 40 MG, VARIOUS DOSES OFF/ON FOR 25 YEARS (NR), PO
     Route: 048

REACTIONS (4)
  - ANGER [None]
  - HIP ARTHROPLASTY [None]
  - OSTEOPOROSIS [None]
  - RIB FRACTURE [None]
